FAERS Safety Report 4973096-6 (Version None)
Quarter: 2006Q2

REPORT INFORMATION
  Report Type: 
  Country: None (occurrence: None)
  Receive Date: 20060414
  Receipt Date: 20060215
  Transmission Date: 20061013
  Serious: Yes (Life-Threatening)
  Sender: FDA-Public Use
  Company Number: JP-ROCHE-437304

PATIENT
  Age: 23 Year
  Sex: Female
  Weight: 52 kg

DRUGS (5)
  1. TAMIFLU [Suspect]
     Route: 048
     Dates: start: 20060127, end: 20060129
  2. CODEINE PHOSPHATE [Suspect]
     Indication: COUGH
     Route: 048
     Dates: start: 20060201, end: 20060203
  3. LOXONIN [Concomitant]
     Route: 048
     Dates: start: 20060127, end: 20060130
  4. COLDRIN [Concomitant]
     Route: 048
     Dates: start: 20060127, end: 20060203
  5. PL [Concomitant]
     Route: 048
     Dates: start: 20060127, end: 20060130

REACTIONS (3)
  - DRUG ERUPTION [None]
  - DYSPNOEA [None]
  - RASH [None]
